FAERS Safety Report 9318050 (Version 1)
Quarter: 2013Q2

REPORT INFORMATION
  Report Type: Report from Study
  Country: JP (occurrence: JP)
  Receive Date: 20130530
  Receipt Date: 20130530
  Transmission Date: 20140414
  Serious: Yes (Other)
  Sender: FDA-Public Use
  Company Number: JP-ROCHE-1228555

PATIENT
  Sex: 0

DRUGS (4)
  1. PEG-INTERFERON ALFA 2A [Suspect]
     Indication: HEPATITIS C
     Dosage: 90-120 MCG PER WEEK
     Route: 065
  2. PEG-INTERFERON ALFA 2A [Suspect]
     Dosage: ESCALTED DOSE
     Route: 065
  3. COPEGUS [Concomitant]
     Indication: HEPATITIS C
     Dosage: 200- 400 MG PER DAY
     Route: 065
  4. COPEGUS [Concomitant]
     Route: 065

REACTIONS (1)
  - Graft dysfunction [Unknown]
